FAERS Safety Report 8811724 (Version 1)
Quarter: 2012Q4

REPORT INFORMATION
  Report Type: Spontaneous
  Country: US (occurrence: None)
  Receive Date: 20120925
  Receipt Date: 20120925
  Transmission Date: 20130627
  Serious: Yes (Disabling)
  Sender: FDA-Public Use
  Company Number: None

PATIENT
  Age: 61 Year
  Sex: Female

DRUGS (1)
  1. INVEGA [Suspect]
     Route: 048

REACTIONS (6)
  - Tremor [None]
  - Muscle spasms [None]
  - Dry mouth [None]
  - Gait disturbance [None]
  - Pain [None]
  - Tardive dyskinesia [None]
